FAERS Safety Report 7749160-5 (Version None)
Quarter: 2011Q3

REPORT INFORMATION
  Report Type: 
  Country: None (occurrence: None)
  Receive Date: 20110909
  Receipt Date: 20110819
  Transmission Date: 20111222
  Serious: Yes (Other)
  Sender: FDA-Public Use
  Company Number: 2011AP001960

PATIENT
  Age: 43 Year
  Sex: Female

DRUGS (3)
  1. ALPRAZOLAM [Concomitant]
  2. CLOMIPRAMINE HCL [Concomitant]
  3. PAROXETINE HCL [Suspect]
     Indication: DEPRESSION
     Dosage: 10 MG; QD;

REACTIONS (4)
  - ORAL HERPES [None]
  - ERYTHEMA MULTIFORME [None]
  - CROSS SENSITIVITY REACTION [None]
  - PHOTOSENSITIVITY REACTION [None]
